FAERS Safety Report 14827822 (Version 1)
Quarter: 2018Q2

REPORT INFORMATION
  Report Type: Spontaneous
  Country: US (occurrence: US)
  Receive Date: 20180406
  Receipt Date: 20180406
  Transmission Date: 20180711
  Serious: Yes (Disabling)
  Sender: FDA-Public Use
  Company Number: None

PATIENT
  Age: 47 Year
  Sex: Female
  Weight: 73.8 kg

DRUGS (4)
  1. ESTRADIOL. [Concomitant]
     Active Substance: ESTRADIOL
  2. SERTRALINE HCL [Concomitant]
     Active Substance: SERTRALINE HYDROCHLORIDE
  3. MEDROXYPROGESTERONE [Concomitant]
     Active Substance: MEDROXYPROGESTERONE
  4. TOPIRAMATE. [Suspect]
     Active Substance: TOPIRAMATE
     Indication: SLEEP DISORDER
     Dosage: ?          QUANTITY:1 TABLET(S); AT BEDTIME  ORAL?
     Route: 048

REACTIONS (7)
  - Eye pain [None]
  - Glaucoma [None]
  - Vision blurred [None]
  - Nerve injury [None]
  - Eye irritation [None]
  - Visual impairment [None]
  - Ocular hyperaemia [None]

NARRATIVE: CASE EVENT DATE: 20180302
